FAERS Safety Report 7582253-4 (Version None)
Quarter: 2011Q2

REPORT INFORMATION
  Report Type: 
  Country: None (occurrence: None)
  Receive Date: 20110622
  Receipt Date: 20110607
  Transmission Date: 20111010
  Serious: Yes (Hospitalization, Other)
  Sender: FDA-Public Use
  Company Number: 2011SP024114

PATIENT
  Age: 31 Year
  Sex: Female
  Weight: 55 kg

DRUGS (6)
  1. ACETAMINOPHEN [Concomitant]
  2. AUGMENTAN /00756801/ [Concomitant]
  3. MIRTAZAPINE [Suspect]
     Indication: DEPRESSION
     Dosage: 30 MG;QD; 15 MG;QD
     Dates: end: 20100612
  4. MIRTAZAPINE [Suspect]
     Indication: DEPRESSION
     Dosage: 30 MG;QD; 15 MG;QD
     Dates: start: 20091001
  5. ESCITALOPRAM [Suspect]
     Indication: DEPRESSION
     Dosage: 10 MG;QD;PO
     Route: 048
     Dates: start: 20091001, end: 20091201
  6. FOLIO FORTE [Concomitant]

REACTIONS (6)
  - CAESAREAN SECTION [None]
  - PREMATURE DELIVERY [None]
  - PRE-ECLAMPSIA [None]
  - DRUG EXPOSURE DURING PREGNANCY [None]
  - URINARY TRACT INFECTION [None]
  - PAIN [None]
